FAERS Safety Report 10022902 (Version 1)
Quarter: 2014Q1

REPORT INFORMATION
  Report Type: Spontaneous
  Country: FR (occurrence: FR)
  Receive Date: 20140319
  Receipt Date: 20140319
  Transmission Date: 20141002
  Serious: Yes (Hospitalization, Other)
  Sender: FDA-Public Use
  Company Number: FR-GILEAD-2014-0097039

PATIENT
  Age: 47 Year
  Sex: Male
  Weight: 61 kg

DRUGS (9)
  1. TRUVADA [Suspect]
     Indication: HIV INFECTION
     Dosage: 1 DF, UNK
     Route: 048
     Dates: end: 20130315
  2. NORVIR [Concomitant]
     Indication: HIV INFECTION
     Dosage: 100 MG, UNK
     Route: 048
  3. PREZISTA [Concomitant]
     Indication: HIV INFECTION
     Dosage: 800 MG, UNK
     Route: 048
  4. TEMESTA                            /00273201/ [Concomitant]
     Dosage: 2.5 MG, UNK
  5. ZYPREXA [Concomitant]
     Dosage: 15 MG, UNK
     Route: 048
  6. THERALENE [Concomitant]
     Dosage: UNK
     Route: 048
     Dates: end: 20130621
  7. TERCIAN                            /00759301/ [Concomitant]
     Dosage: 75 MG, UNK
     Route: 048
     Dates: end: 20130621
  8. DEPAKINE CHRONO [Concomitant]
     Dosage: 500 MG, UNK
     Route: 048
     Dates: end: 20130621
  9. INEXIUM                            /01479302/ [Concomitant]
     Dosage: 40 MG, UNK
     Route: 048
     Dates: end: 20130621

REACTIONS (3)
  - Metabolic acidosis [Recovering/Resolving]
  - Fanconi syndrome acquired [Recovering/Resolving]
  - Rhabdomyolysis [Recovering/Resolving]
